FAERS Safety Report 6345581-6 (Version None)
Quarter: 2009Q3

REPORT INFORMATION
  Report Type: 
  Country: None (occurrence: None)
  Receive Date: 20090821
  Receipt Date: 20090709
  Transmission Date: 20100115
  Serious: Yes (Hospitalization)
  Sender: FDA-Public Use
  Company Number: 8048834

PATIENT
  Age: 66 Year
  Sex: Female

DRUGS (8)
  1. CIMZIA [Suspect]
     Indication: CROHN'S DISEASE
     Dosage: 400 MG 2/W SC
     Route: 058
     Dates: start: 20090210, end: 20090224
  2. CIMZIA [Suspect]
     Indication: CROHN'S DISEASE
     Dosage: 400 MG /M SC
     Route: 058
     Dates: start: 20090318, end: 20090612
  3. ASACOL [Concomitant]
  4. TUMS [Concomitant]
  5. VITAMIN D [Concomitant]
  6. IRON [Concomitant]
  7. PRILOSEC [Concomitant]
  8. FUROSEMIDE [Concomitant]

REACTIONS (3)
  - HEART RATE INCREASED [None]
  - THROMBOSIS [None]
  - URINARY TRACT INFECTION [None]
